FAERS Safety Report 5283994-4 (Version None)
Quarter: 2007Q2

REPORT INFORMATION
  Report Type: 
  Country: None (occurrence: None)
  Receive Date: 20070402
  Receipt Date: 20070326
  Transmission Date: 20071010
  Serious: Yes (Hospitalization)
  Sender: FDA-Public Use
  Company Number: JP-PFIZER INC-2007019881

PATIENT
  Age: 74 Year
  Sex: Male

DRUGS (8)
  1. CARDENALIN [Suspect]
     Indication: HYPERTENSION
     Dosage: DAILY DOSE:4MG-FREQ:DAILY
     Route: 048
     Dates: start: 20020701, end: 20070301
  2. ADALAT [Concomitant]
     Route: 048
     Dates: start: 20021201, end: 20070301
  3. ALLOPURINOL [Concomitant]
     Route: 048
     Dates: start: 20031001, end: 20070301
  4. INCREMIN [Concomitant]
     Route: 048
  5. GASTER [Concomitant]
     Route: 048
  6. PURSENNID [Concomitant]
     Route: 048
  7. LASIX [Concomitant]
     Route: 048
  8. KREMEZIN [Concomitant]
     Route: 048

REACTIONS (2)
  - EOSINOPHIL COUNT INCREASED [None]
  - RENAL IMPAIRMENT [None]
